FAERS Safety Report 6075558-X (Version None)
Quarter: 2009Q1

REPORT INFORMATION
  Report Type: 
  Country: None (occurrence: None)
  Receive Date: 20090210
  Receipt Date: 20090210
  Transmission Date: 20090719
  Serious: Yes (Other)
  Sender: FDA-Public Use
  Company Number: None

PATIENT
  Age: 58 Year
  Sex: Female
  Weight: 46.7205 kg

DRUGS (1)
  1. ZOLPIDEM [Suspect]
     Indication: INSOMNIA
     Dosage: 10 MG. 1 X PER DAY PO
     Route: 048
     Dates: start: 20090128, end: 20090208

REACTIONS (2)
  - CONFUSIONAL STATE [None]
  - PRODUCT QUALITY ISSUE [None]
